FAERS Safety Report 13716428 (Version 1)
Quarter: 2017Q3

REPORT INFORMATION
  Report Type: Report from Study
  Country: JP (occurrence: JP)
  Receive Date: 20170705
  Receipt Date: 20170705
  Transmission Date: 20171127
  Serious: Yes (Death, Other)
  Sender: FDA-Public Use
  Company Number: JP-ASTELLAS-2015JP025233

PATIENT
  Age: 86 Year
  Sex: Male
  Weight: 45 kg

DRUGS (13)
  1. ENZALUTAMIDE [Suspect]
     Active Substance: ENZALUTAMIDE
     Route: 048
     Dates: end: 20170125
  2. LAC-B [Concomitant]
     Active Substance: BIFIDOBACTERIUM SPP.
     Indication: PROPHYLAXIS
     Route: 048
     Dates: end: 20170125
  3. PREDNISOLONE. [Concomitant]
     Active Substance: PREDNISOLONE
     Indication: MYELODYSPLASTIC SYNDROME
     Route: 048
     Dates: end: 20170125
  4. GENINAX [Concomitant]
     Active Substance: GARENOXACIN MESYLATE
     Indication: MYELODYSPLASTIC SYNDROME
     Route: 048
     Dates: end: 20170125
  5. CELECOX [Concomitant]
     Active Substance: CELECOXIB
     Indication: PROPHYLAXIS
     Route: 048
     Dates: end: 20170125
  6. ENZALUTAMIDE [Suspect]
     Active Substance: ENZALUTAMIDE
     Route: 048
     Dates: start: 20151225
  7. CARBOCISTEINE [Concomitant]
     Active Substance: CARBOCYSTEINE
     Indication: PNEUMONIA
     Dosage: 0.5 DF, THRICE DAILY
     Route: 048
     Dates: end: 20170125
  8. METHYCOBAL [Concomitant]
     Active Substance: METHYLCOBALAMIN
     Indication: PROPHYLAXIS
     Route: 048
     Dates: end: 20170125
  9. CLARITHROMYCIN. [Concomitant]
     Active Substance: CLARITHROMYCIN
     Indication: MYELODYSPLASTIC SYNDROME
     Route: 048
     Dates: end: 20170125
  10. FAMOTIDINE. [Concomitant]
     Active Substance: FAMOTIDINE
     Indication: PROPHYLAXIS
     Route: 048
     Dates: end: 20170125
  11. ITRACONAZOLE. [Concomitant]
     Active Substance: ITRACONAZOLE
     Indication: MYELODYSPLASTIC SYNDROME
     Route: 048
     Dates: end: 20170125
  12. ENZALUTAMIDE [Suspect]
     Active Substance: ENZALUTAMIDE
     Indication: HORMONE-REFRACTORY PROSTATE CANCER
     Route: 048
     Dates: start: 20151217, end: 20151224
  13. FEBURIC [Concomitant]
     Active Substance: FEBUXOSTAT
     Indication: PROPHYLAXIS
     Route: 048
     Dates: end: 20170125

REACTIONS (2)
  - Intentional underdose [Unknown]
  - Sepsis [Fatal]

NARRATIVE: CASE EVENT DATE: 20151217
